FAERS Safety Report 18203456 (Version 1)
Quarter: 2020Q3

REPORT INFORMATION
  Report Type: Report from Study
  Country: GB (occurrence: GB)
  Receive Date: 20200827
  Receipt Date: 20200827
  Transmission Date: 20201103
  Serious: Yes (Other)
  Sender: FDA-Public Use
  Company Number: NVSC2020GB106333

PATIENT
  Sex: Female

DRUGS (2)
  1. HYRIMOZ [Suspect]
     Active Substance: ADALIMUMAB-ADAZ
     Indication: PSORIATIC ARTHROPATHY
     Dosage: 40 MG, Q2W
     Route: 058
     Dates: start: 20190910
  2. HYRIMOZ [Suspect]
     Active Substance: ADALIMUMAB-ADAZ
     Dosage: 40 MG, Q2W
     Route: 058
     Dates: start: 20200617

REACTIONS (11)
  - Coronavirus infection [Not Recovered/Not Resolved]
  - Paraplegia [Unknown]
  - Anosmia [Unknown]
  - Ageusia [Unknown]
  - Psoriasis [Unknown]
  - Fatigue [Unknown]
  - Arthralgia [Unknown]
  - Food poisoning [Unknown]
  - Neuralgia [Not Recovered/Not Resolved]
  - Tonsillitis [Unknown]
  - Infection [Not Recovered/Not Resolved]
